FAERS Safety Report 16934919 (Version 1)
Quarter: 2019Q4

REPORT INFORMATION
  Report Type: Spontaneous
  Country: DE (occurrence: DE)
  Receive Date: 20191018
  Receipt Date: 20191018
  Transmission Date: 20200122
  Serious: Yes (Other)
  Sender: FDA-Public Use
  Company Number: DE-JNJFOC-20191011287

PATIENT
  Sex: Female

DRUGS (2)
  1. STELARA [Suspect]
     Active Substance: USTEKINUMAB
     Indication: PRODUCT USED FOR UNKNOWN INDICATION
     Route: 063
  2. OXYTOCIN. [Concomitant]
     Active Substance: OXYTOCIN
     Indication: ANAESTHESIA

REACTIONS (2)
  - Exposure via breast milk [Unknown]
  - Foetal growth restriction [Unknown]
